FAERS Safety Report 22930912 (Version 3)
Quarter: 2023Q4

REPORT INFORMATION
  Report Type: Spontaneous
  Country: US (occurrence: US)
  Receive Date: 20230911
  Receipt Date: 20231005
  Transmission Date: 20240110
  Serious: No
  Sender: FDA-Public Use
  Company Number: US-JNJFOC-20230911973

PATIENT
  Sex: Male

DRUGS (1)
  1. CONCERTA [Suspect]
     Active Substance: METHYLPHENIDATE HYDROCHLORIDE
     Indication: Product used for unknown indication
     Route: 048

REACTIONS (1)
  - Drug ineffective [Unknown]
